FAERS Safety Report 24769622 (Version 1)
Quarter: 2024Q4

REPORT INFORMATION
  Report Type: Spontaneous
  Country: ES (occurrence: ES)
  Receive Date: 20241224
  Receipt Date: 20241224
  Transmission Date: 20250115
  Serious: Yes (Other)
  Sender: TEVA
  Company Number: None

PATIENT
  Age: 64 Year
  Sex: Female

DRUGS (2)
  1. TERIPARATIDE [Suspect]
     Active Substance: TERIPARATIDE
     Indication: Product used for unknown indication
     Dosage: TIME INTERVAL: TOTAL: 20 MICROGRAMS/80 MICROLITERS1 PRE-FILLED PEN OF 2.4 ML
     Route: 058
     Dates: start: 20241202, end: 20241202
  2. TERIPARATIDE [Concomitant]
     Active Substance: TERIPARATIDE
     Indication: Product used for unknown indication
     Dosage: 20 MICROGRAMS /80 MICROLITERS
     Route: 058
     Dates: start: 20241119, end: 20241202

REACTIONS (4)
  - Nausea [Recovered/Resolved]
  - Dyspepsia [Recovered/Resolved]
  - Overdose [Recovered/Resolved]
  - Palpitations [Recovered/Resolved]

NARRATIVE: CASE EVENT DATE: 20241202
